FAERS Safety Report 8856019 (Version 1)
Quarter: 2012Q4

REPORT INFORMATION
  Report Type: Spontaneous
  Country: US (occurrence: None)
  Receive Date: 20121022
  Receipt Date: 20121022
  Transmission Date: 20130627
  Serious: Yes (Other)
  Sender: FDA-Public Use
  Company Number: None

PATIENT
  Age: 47 Year
  Sex: Female
  Weight: 55.4 kg

DRUGS (8)
  1. HERCEPTIN [Suspect]
     Indication: BREAST CARCINOMA NOS STAGE I
     Dosage: 8 mg/kg load, then 6 mg/kg; ;q3weeks; IV
     Route: 042
     Dates: start: 20110909, end: 20120906
  2. CARBOPLATIN AUC [Concomitant]
  3. DOCETAXEL [Concomitant]
  4. FLUOXETINE [Concomitant]
  5. MULTIVITAMIN [Concomitant]
  6. VALTREX [Concomitant]
  7. DRONABINOL [Concomitant]
  8. IBUPROFEN [Concomitant]

REACTIONS (1)
  - Ejection fraction decreased [None]
